FAERS Safety Report 13183339 (Version 2)
Quarter: 2017Q1

REPORT INFORMATION
  Report Type: Spontaneous
  Country: NZ (occurrence: NZ)
  Receive Date: 20170203
  Receipt Date: 20170216
  Transmission Date: 20170428
  Serious: Yes (Hospitalization)
  Sender: FDA-Public Use
  Company Number: NZ-GUERBET LLC-1062689

PATIENT
  Age: 55 Year
  Sex: Female
  Weight: 88 kg

DRUGS (1)
  1. DOTAREM [Suspect]
     Active Substance: GADOTERATE MEGLUMINE
     Indication: NUCLEAR MAGNETIC RESONANCE IMAGING
     Route: 042
     Dates: start: 20170125, end: 20170125

REACTIONS (5)
  - Loss of consciousness [Recovering/Resolving]
  - Malaise [Recovering/Resolving]
  - Paraesthesia [Recovering/Resolving]
  - Vomiting [Recovering/Resolving]
  - Obstructive airways disorder [Recovering/Resolving]

NARRATIVE: CASE EVENT DATE: 20170125
